FAERS Safety Report 18791091 (Version 1)
Quarter: 2021Q1

REPORT INFORMATION
  Report Type: Spontaneous
  Country: IT (occurrence: IT)
  Receive Date: 20210126
  Receipt Date: 20210126
  Transmission Date: 20210419
  Serious: Yes (Disabling)
  Sender: FDA-Public Use
  Company Number: IT-BAYER-2021-033207

PATIENT
  Age: 30 Year
  Sex: Female
  Weight: 51 kg

DRUGS (1)
  1. CIPROXIN [Suspect]
     Active Substance: CIPROFLOXACIN
     Indication: CYSTITIS
     Dosage: 15 DF, QD
     Route: 048
     Dates: start: 20200810, end: 20200825

REACTIONS (1)
  - Vulvovaginal pain [Not Recovered/Not Resolved]
